FAERS Safety Report 8376742-2 (Version None)
Quarter: 2012Q2

REPORT INFORMATION
  Report Type: 
  Country: None (occurrence: None)
  Receive Date: 20120522
  Receipt Date: 20120418
  Transmission Date: 20120825
  Serious: No
  Sender: FDA-Public Use
  Company Number: US-BRISTOL-MYERS SQUIBB COMPANY-16533986

PATIENT
  Age: 77 Year
  Sex: Female

DRUGS (1)
  1. ONGLYZA [Suspect]
     Indication: DIABETES MELLITUS
     Dosage: FOR ABOUT 3 WEEKS TO A MONTH,SAMPLES

REACTIONS (1)
  - OEDEMA PERIPHERAL [None]
